FAERS Safety Report 9247362 (Version 1)
Quarter: 2013Q2

REPORT INFORMATION
  Report Type: Spontaneous
  Country: BR (occurrence: BR)
  Receive Date: 20130423
  Receipt Date: 20130423
  Transmission Date: 20140414
  Serious: Yes (Other)
  Sender: FDA-Public Use
  Company Number: BR-JNJFOC-20130408957

PATIENT
  Sex: Female

DRUGS (6)
  1. CHLORHEXIDINE [Concomitant]
     Route: 061
  2. CEFAZOLIN [Concomitant]
     Indication: ANTIBIOTIC THERAPY
     Route: 042
  3. RIVAROXABAN [Suspect]
     Indication: THROMBOSIS PROPHYLAXIS
     Route: 048
  4. TRAMADOL HYDROCHLORIDE [Concomitant]
     Indication: ANALGESIC THERAPY
     Route: 042
  5. DIPYRONE [Concomitant]
     Indication: ANALGESIC THERAPY
     Route: 042
  6. TENOXICAM [Concomitant]
     Indication: ANTIINFLAMMATORY THERAPY
     Route: 065

REACTIONS (2)
  - Post procedural haematoma [Unknown]
  - Abdominal wound dehiscence [Unknown]
